FAERS Safety Report 15140385 (Version 2)
Quarter: 2018Q3

REPORT INFORMATION
  Report Type: Spontaneous
  Country: DE (occurrence: DE)
  Receive Date: 20180713
  Receipt Date: 20180911
  Transmission Date: 20181010
  Serious: Yes (Other)
  Sender: FDA-Public Use
  Company Number: DE-MYLANLABS-2018M1012385

PATIENT
  Age: 69 Year
  Sex: Male
  Weight: 75 kg

DRUGS (35)
  1. EXJADE [Suspect]
     Active Substance: DEFERASIROX
     Dosage: 500 MG, BID (500 MG IN THE MORNING AND 500 MG IN THE EVENING)
     Route: 048
     Dates: start: 2013
  2. EXJADE [Suspect]
     Active Substance: DEFERASIROX
     Indication: MYELODYSPLASTIC SYNDROME
     Dosage: 360 MG, OT
     Route: 065
  3. BEPANTHEN                          /00178901/ [Concomitant]
     Active Substance: DEXPANTHENOL
     Indication: PRODUCT USED FOR UNKNOWN INDICATION
     Dosage: UNK, SEVERAL TIMES DAILY
     Route: 065
  4. LOSARTAN CT [Concomitant]
     Indication: HYPERTENSION
     Dosage: 50 MG, (01 TABLET)
     Route: 065
  5. MARCUMAR [Suspect]
     Active Substance: PHENPROCOUMON
     Indication: ARRHYTHMIA
     Dosage: 1 DF, QD (1 TABLET PER DAY)
     Route: 048
     Dates: start: 2006
  6. EXJADE [Suspect]
     Active Substance: DEFERASIROX
     Indication: HAEMOSIDEROSIS
  7. RED BLOOD CELLS [Concomitant]
     Active Substance: HUMAN RED BLOOD CELL
     Dosage: 2 DF, UNK (FRIDAY)
     Route: 065
  8. VALSACOR [Concomitant]
     Active Substance: VALSARTAN
     Indication: HYPERTENSION
     Dosage: 0.5 DF, UNK, IN EVENING
     Route: 065
  9. EXJADE [Suspect]
     Active Substance: DEFERASIROX
     Indication: HAEMOSIDEROSIS
     Dosage: 250 MG, BID
     Route: 048
     Dates: start: 201308
  10. EXJADE [Suspect]
     Active Substance: DEFERASIROX
     Dosage: 500 UNK, UNK
     Route: 048
     Dates: start: 201312
  11. ALLOPURINOL. [Concomitant]
     Active Substance: ALLOPURINOL
     Dosage: 1 DF, IN THE MORNING
     Route: 065
  12. EUPHORBIUM COMP                    /07494301/ [Concomitant]
     Indication: PRODUCT USED FOR UNKNOWN INDICATION
     Dosage: UNK (A FEW TIMES A DAY)
     Route: 065
  13. HCT [Concomitant]
     Active Substance: HYDROCHLOROTHIAZIDE
     Dosage: 12.5 MG, QD
  14. HYLO?COMOD [Concomitant]
     Active Substance: HYALURONATE SODIUM
     Indication: PRODUCT USED FOR UNKNOWN INDICATION
     Dosage: UNK, A FEW TIMES A DAY
     Route: 065
  15. NEUPRO [Concomitant]
     Active Substance: ROTIGOTINE
     Indication: RESTLESS LEGS SYNDROME
     Dosage: 6 MG, QD
     Route: 065
  16. METOPROLOL. [Concomitant]
     Active Substance: METOPROLOL
     Dosage: 47.5 MG (1 TABLET)
  17. HCT [Concomitant]
     Active Substance: HYDROCHLOROTHIAZIDE
     Indication: HYPERTENSION
     Dosage: 50 MG, QD
     Route: 048
     Dates: start: 2010
  18. EXJADE [Suspect]
     Active Substance: DEFERASIROX
     Dosage: 2000 MG, DAILY (1000 MG IN THE MORNING AND 1000 MG IN THE EVENING)
     Route: 048
  19. JAKAVI [Suspect]
     Active Substance: RUXOLITINIB
     Dosage: 5 MG, BID  (1 TABLET IN MORNING AND 1 TABLET IN EVENING)
     Route: 048
     Dates: start: 201310
  20. ALLOPURINOL. [Concomitant]
     Active Substance: ALLOPURINOL
     Dosage: 100 MG, QD
     Route: 065
  21. MARCUMAR [Suspect]
     Active Substance: PHENPROCOUMON
     Indication: PULMONARY EMBOLISM
     Dosage: 1 TABLET PER DAY
     Route: 048
     Dates: start: 2004
  22. LOSARTAN. [Concomitant]
     Active Substance: LOSARTAN
     Indication: PRODUCT USED FOR UNKNOWN INDICATION
     Dosage: 12.5 MG, QD
     Route: 048
     Dates: start: 2010
  23. RED BLOOD CELLS [Concomitant]
     Active Substance: HUMAN RED BLOOD CELL
     Indication: PRODUCT USED FOR UNKNOWN INDICATION
     Dosage: 2 DF, EVERY 8 TO 10 DAYS
     Route: 065
  24. HCT BETA [Concomitant]
     Active Substance: HYDROCHLOROTHIAZIDE
     Indication: HYPERTENSION
     Dosage: 0.5 DF, IF NECESSARY
     Route: 065
  25. HCT BETA [Concomitant]
     Active Substance: HYDROCHLOROTHIAZIDE
     Dosage: 12.5 UNK, UNK (1 TABLET, (PRN)
     Route: 065
  26. EXJADE [Suspect]
     Active Substance: DEFERASIROX
     Dosage: 500 MG, BID
     Route: 048
  27. JAKAVI [Suspect]
     Active Substance: RUXOLITINIB
     Indication: MYELOFIBROSIS
     Dosage: 5 MG, QD
     Route: 048
     Dates: start: 20131015
  28. ALLOPURINOL. [Concomitant]
     Active Substance: ALLOPURINOL
     Indication: PRODUCT USED FOR UNKNOWN INDICATION
     Dosage: 0.5, DF, UNK
     Route: 065
  29. TORASEMIDE [Concomitant]
     Active Substance: TORSEMIDE
     Indication: PRODUCT USED FOR UNKNOWN INDICATION
     Dosage: 0.5 DF, BID (10 MG)
     Route: 065
  30. MARCUMAR [Suspect]
     Active Substance: PHENPROCOUMON
     Indication: DEEP VEIN THROMBOSIS
     Dosage: 3 MG, ACCORDING TO INR, TARGET INR: 1,52,0, (1/23/4 OF TABLET)
     Route: 048
  31. VALSARTAN. [Suspect]
     Active Substance: VALSARTAN
     Indication: PRODUCT USED FOR UNKNOWN INDICATION
     Dosage: 0.5 DF, QD
     Route: 065
  32. EXJADE [Suspect]
     Active Substance: DEFERASIROX
     Indication: MYELODYSPLASTIC SYNDROME
     Dosage: 750 MG, QD
     Route: 048
     Dates: start: 2012
  33. EXJADE [Suspect]
     Active Substance: DEFERASIROX
     Dosage: 1500 MG, QD
     Route: 048
     Dates: start: 20131201
  34. NEUPRO [Concomitant]
     Active Substance: ROTIGOTINE
     Dosage: 2 MG, PER 24 HOURS IN THE EVENING
  35. METOPROLOL. [Concomitant]
     Active Substance: METOPROLOL
     Indication: HYPERTENSION
     Dosage: 1 DF, IN MORNING
     Route: 065

REACTIONS (11)
  - Pericardial effusion [Recovered/Resolved]
  - Pleural effusion [Recovered/Resolved]
  - Dyspnoea [Unknown]
  - Blood creatinine increased [Unknown]
  - Haemoglobin decreased [Unknown]
  - Restless legs syndrome [Not Recovered/Not Resolved]
  - Abscess [Not Recovered/Not Resolved]
  - Weight increased [Unknown]
  - Thrombocytopenia [Not Recovered/Not Resolved]
  - Platelet count decreased [Unknown]
  - White blood cell count decreased [Unknown]

NARRATIVE: CASE EVENT DATE: 2013
